FAERS Safety Report 14516699 (Version 1)
Quarter: 2018Q1

REPORT INFORMATION
  Report Type: Report from Study
  Country: None (occurrence: DE)
  Receive Date: 20180212
  Receipt Date: 20180212
  Transmission Date: 20180509
  Serious: Yes (Hospitalization, Disabling)
  Sender: FDA-Public Use
  Company Number: DE-ABBVIE-18K-062-2249832-00

PATIENT
  Age: 77 Year
  Sex: Female

DRUGS (5)
  1. MTX [Concomitant]
     Active Substance: METHOTREXATE SODIUM
     Dates: start: 2013
  2. MTX [Concomitant]
     Active Substance: METHOTREXATE SODIUM
     Dates: end: 2017
  3. MTX [Concomitant]
     Active Substance: METHOTREXATE SODIUM
     Indication: PRODUCT USED FOR UNKNOWN INDICATION
     Dates: start: 199609, end: 2013
  4. HUMIRA [Suspect]
     Active Substance: ADALIMUMAB
     Indication: RHEUMATOID ARTHRITIS
     Route: 058
     Dates: start: 200607, end: 200610
  5. MTX [Concomitant]
     Active Substance: METHOTREXATE SODIUM
     Dates: start: 2017

REACTIONS (6)
  - Osteoarthritis [Unknown]
  - Aortic valve stenosis [Unknown]
  - Phlebitis [Unknown]
  - Arthralgia [Unknown]
  - Aortic valve incompetence [Unknown]
  - Pain in extremity [Unknown]

NARRATIVE: CASE EVENT DATE: 20161204
